FAERS Safety Report 6216930-4 (Version None)
Quarter: 2009Q2

REPORT INFORMATION
  Report Type: 
  Country: None (occurrence: None)
  Receive Date: 20090605
  Receipt Date: 20090526
  Transmission Date: 20091009
  Serious: Yes (Other)
  Sender: FDA-Public Use
  Company Number: GB-ABBOTT-09P-167-0576312-00

PATIENT
  Weight: 1.816 kg

DRUGS (5)
  1. RITONAVIR [Suspect]
     Indication: DRUG EXPOSURE DURING PREGNANCY
     Route: 064
  2. REYATAZ [Suspect]
     Indication: HIV INFECTION
     Route: 064
  3. REYATAZ [Suspect]
     Indication: ROUTINE HEALTH MAINTENANCE
  4. DIDANOSINE [Suspect]
     Indication: HIV INFECTION
     Route: 064
  5. ABACAVIR [Suspect]
     Indication: HIV INFECTION
     Route: 064

REACTIONS (3)
  - DRUG EXPOSURE DURING PREGNANCY [None]
  - NORMAL NEWBORN [None]
  - PREMATURE LABOUR [None]
